FAERS Safety Report 6401150-0 (Version None)
Quarter: 2009Q4

REPORT INFORMATION
  Report Type: 
  Country: None (occurrence: None)
  Receive Date: 20091015
  Receipt Date: 20080108
  Transmission Date: 20100525
  Serious: Yes (Other)
  Sender: FDA-Public Use
  Company Number: US-ASTRAZENECA-2007UW11107

PATIENT
  Age: 46 Year
  Sex: Female

DRUGS (21)
  1. SEROQUEL [Suspect]
     Indication: DEPRESSION
     Route: 048
     Dates: start: 20020101, end: 20061230
  2. SEROQUEL [Suspect]
     Indication: SLEEP DISORDER
     Route: 048
     Dates: start: 20020101, end: 20061230
  3. SEROQUEL [Suspect]
     Dosage: 20-300 MG
     Route: 048
     Dates: start: 20050311
  4. SEROQUEL [Suspect]
     Dosage: 20-300 MG
     Route: 048
     Dates: start: 20050311
  5. SEROQUEL [Suspect]
     Route: 048
     Dates: start: 20060523, end: 20061103
  6. SEROQUEL [Suspect]
     Route: 048
     Dates: start: 20060523, end: 20061103
  7. BUMEX [Concomitant]
     Dosage: 2-4 MG
     Dates: start: 20030326
  8. LORAZEPAM [Concomitant]
     Dosage: 1-3 MG
     Route: 048
     Dates: start: 20040916
  9. ZOLOFT [Concomitant]
     Dates: start: 20040124
  10. FLEXERIL [Concomitant]
     Dosage: 10-30 MG
     Dates: start: 20050214
  11. ACTOS [Concomitant]
     Dates: start: 20050216
  12. COZAAR [Concomitant]
     Dosage: 50-100 MG
     Dates: start: 20030326
  13. DIGOXIN [Concomitant]
     Dosage: 0.25 EVERY DAY
     Dates: start: 20040124
  14. NITROGLYCERIN [Concomitant]
     Indication: CHEST PAIN
     Route: 060
     Dates: start: 20030326
  15. TRAZODONE [Concomitant]
     Dates: start: 20040124
  16. OXYCODONE [Concomitant]
     Dates: start: 20040124
  17. CRESTOR [Concomitant]
     Dates: start: 20040124
  18. ALBUTEROL [Concomitant]
     Dates: start: 20030326
  19. LIPITOR [Concomitant]
     Dates: start: 20030326
  20. NEXIUM [Concomitant]
     Dates: start: 20030326
  21. PERCOCET [Concomitant]
     Indication: PAIN
     Dosage: 7.5/325 EVERY 4 HOURS
     Dates: start: 20030326

REACTIONS (8)
  - DIABETES MELLITUS [None]
  - DIABETES MELLITUS INADEQUATE CONTROL [None]
  - DIABETIC GASTROPARESIS [None]
  - DIABETIC NEUROPATHY [None]
  - DIABETIC RETINOPATHY [None]
  - IMPAIRED GASTRIC EMPTYING [None]
  - TYPE 1 DIABETES MELLITUS [None]
  - TYPE 2 DIABETES MELLITUS [None]
